FAERS Safety Report 6482965-X (Version None)
Quarter: 2009Q4

REPORT INFORMATION
  Report Type: 
  Country: None (occurrence: None)
  Receive Date: 20091203
  Receipt Date: 20091119
  Transmission Date: 20100525
  Serious: Yes (Death)
  Sender: FDA-Public Use
  Company Number: 008099

PATIENT

DRUGS (3)
  1. PLETAL [Suspect]
     Dosage: ORAL
     Route: 048
  2. ASPIRIN [Concomitant]
  3. WARFARIN SODIUM [Concomitant]

REACTIONS (1)
  - CEREBRAL HAEMORRHAGE [None]
